FAERS Safety Report 13257529 (Version 2)
Quarter: 2017Q2

REPORT INFORMATION
  Report Type: Report from Study
  Country: US (occurrence: US)
  Receive Date: 20170221
  Receipt Date: 20170419
  Transmission Date: 20170830
  Serious: Yes (Hospitalization, Other)
  Sender: FDA-Public Use
  Company Number: US-PFIZER INC-2017068911

PATIENT
  Age: 43 Year
  Sex: Male

DRUGS (3)
  1. ZIPRASIDONE HCL [Suspect]
     Active Substance: ZIPRASIDONE HYDROCHLORIDE
     Dosage: UNK
  2. BENZTROPINE [Interacting]
     Active Substance: BENZTROPINE
     Dosage: UNK
  3. CLOZAPINE. [Interacting]
     Active Substance: CLOZAPINE
     Indication: SCHIZOPHRENIA
     Dosage: 400 MG, DAILY

REACTIONS (5)
  - Hypotension [Unknown]
  - Pneumonia [Unknown]
  - Ileus [Unknown]
  - Dizziness [Unknown]
  - Drug interaction [Unknown]
